FAERS Safety Report 6884978-2 (Version None)
Quarter: 2010Q3

REPORT INFORMATION
  Report Type: 
  Country: None (occurrence: None)
  Receive Date: 20100729
  Receipt Date: 20071009
  Transmission Date: 20110219
  Serious: No
  Sender: FDA-Public Use
  Company Number: US-PFIZER INC-2007084806

PATIENT
  Age: 47 Year
  Sex: Female

DRUGS (4)
  1. CELEBREX [Suspect]
  2. SYNTHROID [Concomitant]
     Indication: HYPOTHYROIDISM
  3. PROZAC [Concomitant]
     Indication: DEPRESSION
  4. REBIF [Concomitant]
     Dates: start: 20070601

REACTIONS (1)
  - HEPATIC ENZYME INCREASED [None]
